FAERS Safety Report 15035407 (Version 1)
Quarter: 2018Q2

REPORT INFORMATION
  Report Type: Spontaneous
  Country: US (occurrence: US)
  Receive Date: 20180620
  Receipt Date: 20180620
  Transmission Date: 20180711
  Serious: No
  Sender: FDA-Public Use
  Company Number: US-PFIZER INC-2018247536

PATIENT
  Age: 10 Year
  Sex: Female

DRUGS (1)
  1. EUCRISA [Suspect]
     Active Substance: CRISABOROLE
     Indication: ARTHRITIS
     Dosage: UNK, TWICE A DAY
     Route: 061

REACTIONS (1)
  - Drug ineffective for unapproved indication [Unknown]
